FAERS Safety Report 18502050 (Version 2)
Quarter: 2020Q4

REPORT INFORMATION
  Report Type: Report from Study
  Country: BR (occurrence: BR)
  Receive Date: 20201113
  Receipt Date: 20201207
  Transmission Date: 20210114
  Serious: Yes (Hospitalization)
  Sender: FDA-Public Use
  Company Number: BR-JNJFOC-20190526133

PATIENT
  Age: 36 Year
  Sex: Female

DRUGS (4)
  1. TRAMAL [Concomitant]
     Active Substance: TRAMADOL
     Route: 065
  2. PARATRAM [Concomitant]
     Active Substance: ACETAMINOPHEN\TRAMADOL HYDROCHLORIDE
     Route: 065
  3. REMICADE [Suspect]
     Active Substance: INFLIXIMAB
     Indication: ANKYLOSING SPONDYLITIS
     Route: 042
     Dates: end: 20190327
  4. MITRUL [Concomitant]
     Active Substance: CYCLOBENZAPRINE
     Route: 065

REACTIONS (4)
  - Dengue fever [Unknown]
  - Lymphadenopathy [Unknown]
  - Skin plaque [Unknown]
  - Urinary tract infection [Not Recovered/Not Resolved]

NARRATIVE: CASE EVENT DATE: 2019
